FAERS Safety Report 19370892 (Version 1)
Quarter: 2021Q2

REPORT INFORMATION
  Report Type: Other
  Country: IT (occurrence: IT)
  Receive Date: 20210604
  Receipt Date: 20210604
  Transmission Date: 20210717
  Serious: Yes (Other)
  Sender: FDA-Public Use
  Company Number: IT-CELLTRION INC.-2021IT007291

PATIENT

DRUGS (12)
  1. RITUXIMAB (UNKNOWN) [Suspect]
     Active Substance: RITUXIMAB
     Indication: NON-HODGKIN^S LYMPHOMA
     Dosage: R?DHAP? 3 CYCLES
     Route: 065
     Dates: start: 202007, end: 202008
  2. CYCLOPHOSPHAMIDE. [Suspect]
     Active Substance: CYCLOPHOSPHAMIDE
     Indication: NON-HODGKIN^S LYMPHOMA
     Dosage: 1 CYCLE
     Route: 065
     Dates: start: 202012
  3. CISPLATIN. [Suspect]
     Active Substance: CISPLATIN
     Indication: NON-HODGKIN^S LYMPHOMA
     Dosage: R?DHAP? 3 CYCLES
     Route: 065
     Dates: start: 202007, end: 202008
  4. CYTARABINE. [Suspect]
     Active Substance: CYTARABINE
     Indication: NON-HODGKIN^S LYMPHOMA
     Dosage: R?DHAP? 3 CYCLES
     Route: 065
     Dates: start: 202007, end: 202008
  5. DEXAMETHASONE. [Suspect]
     Active Substance: DEXAMETHASONE
     Indication: NON-HODGKIN^S LYMPHOMA
     Dosage: R?DHAP? 3 CYCLES
     Route: 065
     Dates: start: 202007, end: 202008
  6. VINCRISTINE SULFATE. [Suspect]
     Active Substance: VINCRISTINE SULFATE
     Indication: NON-HODGKIN^S LYMPHOMA
     Dosage: 1 CYCLE
     Route: 065
     Dates: start: 202012
  7. DOXORUBICIN [Suspect]
     Active Substance: DOXORUBICIN
     Indication: NON-HODGKIN^S LYMPHOMA
     Dosage: 1 CYCLE
     Route: 065
     Dates: start: 202012
  8. OBINUTUZUMAB. [Suspect]
     Active Substance: OBINUTUZUMAB
     Indication: NON-HODGKIN^S LYMPHOMA
     Dosage: 6 CYCLES?FIRST LINE THERAPY
     Route: 042
     Dates: start: 201912, end: 202005
  9. ETOPOSIDE PHOSPHATE [Suspect]
     Active Substance: ETOPOSIDE PHOSPHATE
     Indication: NON-HODGKIN^S LYMPHOMA
     Dosage: 1 CYCLE
     Route: 065
     Dates: start: 202012
  10. BENDAMUSTINE [Suspect]
     Active Substance: BENDAMUSTINE
     Indication: NON-HODGKIN^S LYMPHOMA
     Dosage: 6 CYCLES?FIRST LINE THERAPY
     Route: 065
     Dates: start: 201912, end: 202005
  11. PREDNISONE. [Suspect]
     Active Substance: PREDNISONE
     Indication: NON-HODGKIN^S LYMPHOMA
     Dosage: 1 CYCLE
     Route: 065
     Dates: start: 202012
  12. PIXANTRONE [Suspect]
     Active Substance: PIXANTRONE
     Indication: NON-HODGKIN^S LYMPHOMA
     Dosage: 2 CYCLES
     Route: 065
     Dates: start: 202010, end: 202011

REACTIONS (5)
  - Thrombocytopenia [Recovered/Resolved]
  - Device related thrombosis [Recovered/Resolved]
  - Anaemia [Recovered/Resolved]
  - Neutropenia [Recovered/Resolved]
  - Disease progression [Not Recovered/Not Resolved]
